FAERS Safety Report 5587127-6 (Version None)
Quarter: 2008Q1

REPORT INFORMATION
  Report Type: 
  Country: None (occurrence: None)
  Receive Date: 20080107
  Receipt Date: 20071227
  Transmission Date: 20080703
  Serious: Yes (Other)
  Sender: FDA-Public Use
  Company Number: 2007JP005797

PATIENT
  Age: 72 Year
  Sex: Female

DRUGS (2)
  1. VESICARE [Suspect]
     Dosage: ORAL
     Route: 048
  2. MAGNESIUM OXIDE (MAGNESIUM OXIDE) [Concomitant]

REACTIONS (1)
  - BLOOD POTASSIUM INCREASED [None]
